FAERS Safety Report 9468646 (Version 1)
Quarter: 2013Q3

REPORT INFORMATION
  Report Type: Spontaneous
  Country: IE (occurrence: IE)
  Receive Date: 20130821
  Receipt Date: 20130821
  Transmission Date: 20140515
  Serious: Yes (Other)
  Sender: FDA-Public Use
  Company Number: IE-ROCHE-1263827

PATIENT
  Sex: Male

DRUGS (2)
  1. XOLAIR [Suspect]
     Indication: CYSTIC FIBROSIS
     Route: 065
  2. XOLAIR [Suspect]
     Indication: BRONCHOPULMONARY ASPERGILLOSIS ALLERGIC

REACTIONS (1)
  - General physical health deterioration [Unknown]
